FAERS Safety Report 25485590 (Version 1)
Quarter: 2025Q2

REPORT INFORMATION
  Report Type: Spontaneous
  Country: CH (occurrence: CH)
  Receive Date: 20250626
  Receipt Date: 20250626
  Transmission Date: 20250716
  Serious: Yes (Other)
  Sender: VERTEX
  Company Number: CH-VERTEX PHARMACEUTICALS-2025-010182

PATIENT
  Sex: Male
  Weight: 3 kg

DRUGS (1)
  1. ELEXACAFTOR\IVACAFTOR\TEZACAFTOR [Suspect]
     Active Substance: ELEXACAFTOR\IVACAFTOR\TEZACAFTOR
     Indication: Cystic fibrosis
     Route: 048

REACTIONS (2)
  - Transient tachypnoea of the newborn [Recovered/Resolved]
  - Off label use [Unknown]
